FAERS Safety Report 8259324-2 (Version None)
Quarter: 2012Q2

REPORT INFORMATION
  Report Type: 
  Country: None (occurrence: None)
  Receive Date: 20120404
  Receipt Date: 20120327
  Transmission Date: 20120825
  Serious: Yes (Hospitalization)
  Sender: FDA-Public Use
  Company Number: US-US-EMD SERONO, INC.-7093980

PATIENT
  Sex: Female
  Weight: 71 kg

DRUGS (5)
  1. REBIF [Suspect]
     Indication: MULTIPLE SCLEROSIS
     Route: 058
     Dates: start: 20090707
  2. NEURONTIN [Concomitant]
     Indication: MULTIPLE SCLEROSIS
     Route: 048
  3. VITAMIN D [Concomitant]
     Indication: MULTIPLE SCLEROSIS
  4. BACLOFEN [Concomitant]
     Indication: MULTIPLE SCLEROSIS
  5. VITAMIN A [Concomitant]
     Indication: MULTIPLE SCLEROSIS

REACTIONS (9)
  - URINARY TRACT INFECTION [None]
  - ARTHRALGIA [None]
  - WHITE BLOOD CELL COUNT DECREASED [None]
  - HYPERHIDROSIS [None]
  - PNEUMONIA [None]
  - MALAISE [None]
  - MUSCULAR WEAKNESS [None]
  - HYPERAESTHESIA [None]
  - CHILLS [None]
